FAERS Safety Report 18762884 (Version 1)
Quarter: 2021Q1

REPORT INFORMATION
  Report Type: Spontaneous
  Country: CA (occurrence: CA)
  Receive Date: 20210120
  Receipt Date: 20210120
  Transmission Date: 20210419
  Serious: Yes (Hospitalization)
  Sender: FDA-Public Use
  Company Number: CA-NOVOPROD-780325

PATIENT

DRUGS (2)
  1. NOVORAPID [Suspect]
     Active Substance: INSULIN ASPART
     Indication: TYPE 2 DIABETES MELLITUS
     Dosage: UNK
     Route: 058
     Dates: start: 20201119
  2. NOVORAPID [Suspect]
     Active Substance: INSULIN ASPART
     Dosage: 3 TO 4 UNITS TID
     Route: 058
     Dates: start: 20201203

REACTIONS (7)
  - Fatigue [Unknown]
  - Loss of consciousness [Unknown]
  - Gastric dilatation [Unknown]
  - Diarrhoea [Unknown]
  - Oedema peripheral [Unknown]
  - Localised oedema [Unknown]
  - Dyspnoea [Unknown]
